FAERS Safety Report 9648817 (Version 2)
Quarter: 2014Q1

REPORT INFORMATION
  Report Type: Spontaneous
  Country: JP (occurrence: JP)
  Receive Date: 20131028
  Receipt Date: 20140129
  Transmission Date: 20141002
  Serious: Yes (Hospitalization)
  Sender: FDA-Public Use
  Company Number: JP-BAYER-2013-129385

PATIENT
  Age: 77 Year
  Sex: Male

DRUGS (5)
  1. STIVARGA [Suspect]
     Indication: COLORECTAL CANCER
     Dosage: 160 MG, QD
     Route: 048
     Dates: start: 20130930, end: 20131003
  2. BLOPRESS [Concomitant]
     Dosage: DAILY DOSE 8 MG
     Route: 048
  3. ADALAT L [Concomitant]
     Dosage: DAILY DOSE 40 MG
     Route: 048
  4. PROTECADIN [Concomitant]
     Dosage: DAILY DOSE 20 MG
     Route: 048
  5. MAGNESIUM OXIDE [Concomitant]
     Dosage: DAILY DOSE 1.5 G
     Route: 048

REACTIONS (2)
  - Colitis ischaemic [Recovered/Resolved]
  - Constipation [Recovered/Resolved]
